FAERS Safety Report 14860411 (Version 1)
Quarter: 2018Q2

REPORT INFORMATION
  Report Type: Spontaneous
  Country: BR (occurrence: BR)
  Receive Date: 20180508
  Receipt Date: 20180508
  Transmission Date: 20180711
  Serious: Yes (Hospitalization, Other)
  Sender: FDA-Public Use
  Company Number: BR-ABBVIE-18K-020-2345122-00

PATIENT
  Age: 51 Year
  Sex: Female
  Weight: 47 kg

DRUGS (9)
  1. AZATHIOPRINE. [Concomitant]
     Active Substance: AZATHIOPRINE
     Indication: CROHN^S DISEASE
     Route: 048
     Dates: start: 2015
  2. ALPRAZOLAM. [Concomitant]
     Active Substance: ALPRAZOLAM
     Indication: ANXIETY
  3. HUMIRA [Suspect]
     Active Substance: ADALIMUMAB
     Indication: CROHN^S DISEASE
     Route: 058
     Dates: start: 201502, end: 2017
  4. MESALAZINE [Concomitant]
     Active Substance: MESALAMINE
     Indication: CROHN^S DISEASE
     Route: 048
     Dates: start: 2015
  5. ELANI CICLO [Concomitant]
     Indication: UTERINE DISORDER
  6. HUMIRA [Suspect]
     Active Substance: ADALIMUMAB
     Indication: SPONDYLOARTHROPATHY
     Route: 058
  7. AZATHIOPRINE. [Concomitant]
     Active Substance: AZATHIOPRINE
     Indication: SPONDYLOARTHROPATHY
  8. PANTOPRAZOLE [Concomitant]
     Active Substance: PANTOPRAZOLE
     Indication: PROPHYLAXIS
     Route: 048
  9. OSCAL D [Concomitant]
     Active Substance: CALCIUM CARBONATE\CHOLECALCIFEROL
     Indication: OSTEOPOROSIS
     Route: 048
     Dates: start: 2015

REACTIONS (14)
  - Cholelithiasis [Recovered/Resolved]
  - Cholecystitis [Recovered/Resolved]
  - Skin burning sensation [Recovered/Resolved]
  - Post procedural infection [Unknown]
  - Skin atrophy [Unknown]
  - Fatigue [Recovering/Resolving]
  - Premature ageing [Not Recovered/Not Resolved]
  - Alopecia [Recovering/Resolving]
  - Hypertension [Recovered/Resolved]
  - Hyperaesthesia [Recovered/Resolved]
  - Skin wound [Unknown]
  - Hypertensive crisis [Unknown]
  - Leiomyoma [Unknown]
  - Gastritis [Unknown]

NARRATIVE: CASE EVENT DATE: 2016
